FAERS Safety Report 10023642 (Version 2)
Quarter: 2014Q1

REPORT INFORMATION
  Report Type: Spontaneous
  Country: US (occurrence: None)
  Receive Date: 20140108
  Receipt Date: 20140114
  Transmission Date: 20141002
  Serious: Yes (Hospitalization, Other)
  Sender: FDA-Public Use
  Company Number: ADR-2013-02194

PATIENT
  Sex: Female

DRUGS (1)
  1. GABLOFEN [Suspect]
     Indication: MUSCLE SPASTICITY

REACTIONS (12)
  - Device related infection [None]
  - Hypertonia [None]
  - Hyperhidrosis [None]
  - Agitation [None]
  - Pain [None]
  - Opisthotonus [None]
  - Posturing [None]
  - Unresponsive to stimuli [None]
  - Cerebrospinal fluid leakage [None]
  - CSF test abnormal [None]
  - Infection [None]
  - Pseudomonas infection [None]
